FAERS Safety Report 12373650 (Version 1)
Quarter: 2016Q2

REPORT INFORMATION
  Report Type: Report from Study
  Country: US (occurrence: US)
  Receive Date: 20160516
  Receipt Date: 20160516
  Transmission Date: 20160815
  Serious: No
  Sender: FDA-Public Use
  Company Number: US-MALLINCKRODT-T201502132

PATIENT
  Age: 28 Year
  Sex: Female

DRUGS (1)
  1. REPOSITORY CORTICOTROPIN INJECTION [Suspect]
     Active Substance: CORTICOTROPIN
     Indication: MULTIPLE SCLEROSIS RELAPSE
     Dosage: 1 INJECTION DAILY
     Route: 058
     Dates: start: 20140515

REACTIONS (9)
  - Malaise [Unknown]
  - Dysgeusia [Unknown]
  - Aggression [Unknown]
  - Injection site bruising [Unknown]
  - Dizziness [Unknown]
  - Emotional disorder [Unknown]
  - Anxiety [Unknown]
  - Headache [Unknown]
  - Nausea [Unknown]

NARRATIVE: CASE EVENT DATE: 201405
